FAERS Safety Report 4502012-6 (Version None)
Quarter: 2004Q4

REPORT INFORMATION
  Report Type: 
  Country: None (occurrence: None)
  Receive Date: 20041116
  Receipt Date: 20030904
  Transmission Date: 20050328
  Serious: Yes (Life-Threatening, Hospitalization, Other)
  Sender: FDA-Public Use
  Company Number: BE-BRISTOL-MYERS SQUIBB COMPANY-12379103

PATIENT
  Age: 19 Year
  Sex: Female

DRUGS (3)
  1. EFAVIRENZ CAPS 600 MG [Suspect]
     Indication: HIV INFECTION
     Route: 048
     Dates: start: 20030724, end: 20030814
  2. LAMIVUDINE + ZIDOVUDINE [Concomitant]
     Dates: start: 20030724
  3. DAPSONE [Concomitant]
     Dates: start: 20030724

REACTIONS (1)
  - STEVENS-JOHNSON SYNDROME [None]
